FAERS Safety Report 9537591 (Version 1)
Quarter: 2013Q3

REPORT INFORMATION
  Report Type: Spontaneous
  Country: GB (occurrence: GB)
  Receive Date: 20130919
  Receipt Date: 20130919
  Transmission Date: 20140515
  Serious: Yes (Other)
  Sender: FDA-Public Use
  Company Number: GB-TEVA-431588ISR

PATIENT
  Age: 59 Year
  Sex: Male
  Weight: 72 kg

DRUGS (2)
  1. RAMIPRIL [Suspect]
     Dates: start: 20130619
  2. CETIRIZINE [Concomitant]
     Dates: start: 20130723, end: 20130820

REACTIONS (2)
  - Cough [Recovered/Resolved]
  - Rhinitis [Recovered/Resolved]
